FAERS Safety Report 5702157-9 (Version None)
Quarter: 2008Q2

REPORT INFORMATION
  Report Type: 
  Country: None (occurrence: None)
  Receive Date: 20080411
  Receipt Date: 20080403
  Transmission Date: 20081010
  Serious: Yes (Hospitalization)
  Sender: FDA-Public Use
  Company Number: PHFR2008GB01229

PATIENT
  Age: 17 Year
  Sex: Female

DRUGS (1)
  1. CLOZARIL [Suspect]
     Indication: SCHIZOPHRENIA
     Route: 048
     Dates: start: 20060508, end: 20080318

REACTIONS (3)
  - CARDIOMYOPATHY [None]
  - MENTAL IMPAIRMENT [None]
  - TYPE 2 DIABETES MELLITUS [None]
